FAERS Safety Report 6242279-X (Version None)
Quarter: 2009Q2

REPORT INFORMATION
  Report Type: 
  Country: None (occurrence: None)
  Receive Date: 20090624
  Receipt Date: 20090615
  Transmission Date: 20091009
  Serious: Yes (Hospitalization)
  Sender: FDA-Public Use
  Company Number: US-BAYER-200923686NA

PATIENT
  Sex: Female

DRUGS (1)
  1. BETASERON [Suspect]
     Indication: DRUG USE FOR UNKNOWN INDICATION
     Dates: start: 20080201, end: 20090401

REACTIONS (4)
  - COGNITIVE DISORDER [None]
  - CONFUSIONAL STATE [None]
  - FALL [None]
  - MULTIPLE SCLEROSIS [None]
